FAERS Safety Report 5208884-4 (Version None)
Quarter: 2007Q1

REPORT INFORMATION
  Report Type: 
  Country: None (occurrence: None)
  Receive Date: 20070111
  Receipt Date: 20070111
  Transmission Date: 20070707
  Serious: Yes (Other)
  Sender: FDA-Public Use
  Company Number: None

PATIENT
  Sex: Female
  Weight: 56.6996 kg

DRUGS (2)
  1. BONIVA [Suspect]
     Indication: OSTEOPOROSIS
     Dosage: 1 1 A MONTH ORAL
     Route: 048
     Dates: start: 20061001
  2. BONIVA [Suspect]
     Indication: OSTEOPOROSIS
     Dosage: 1 1 A MONTH ORAL
     Route: 048
     Dates: start: 20061028

REACTIONS (2)
  - NECK PAIN [None]
  - PAIN IN JAW [None]
